FAERS Safety Report 22534038 (Version 1)
Quarter: 2023Q2

REPORT INFORMATION
  Report Type: Spontaneous
  Country: US (occurrence: US)
  Receive Date: 20230608
  Receipt Date: 20230608
  Transmission Date: 20230721
  Serious: No
  Sender: FDA-Public Use
  Company Number: US-GE HEALTHCARE-2023CSU002417

PATIENT
  Age: 59 Year
  Sex: Female
  Weight: 69.9 kg

DRUGS (6)
  1. ADREVIEW [Suspect]
     Active Substance: IOBENGUANE I-123
     Indication: Diagnostic procedure
     Dosage: 384.8 MBQ (10.4 MCI), ONCE
     Route: 042
     Dates: start: 20230207, end: 20230207
  2. ADREVIEW [Suspect]
     Active Substance: IOBENGUANE I-123
     Indication: Phaeochromocytoma
  3. ADREVIEW [Suspect]
     Active Substance: IOBENGUANE I-123
     Indication: Paraganglion neoplasm
  4. DOXAZOSIN [Concomitant]
     Active Substance: DOXAZOSIN MESYLATE
     Dosage: 1 MG
  5. VITAMINS [Concomitant]
     Active Substance: VITAMINS
     Route: 048
  6. AMLODIPINE [Concomitant]
     Active Substance: AMLODIPINE BESYLATE
     Dosage: 5 MG

REACTIONS (2)
  - Drug ineffective [Recovered/Resolved]
  - No adverse event [Recovered/Resolved]

NARRATIVE: CASE EVENT DATE: 20230208
